FAERS Safety Report 6274807-2 (Version None)
Quarter: 2009Q3

REPORT INFORMATION
  Report Type: 
  Country: None (occurrence: None)
  Receive Date: 20090721
  Receipt Date: 20090713
  Transmission Date: 20100115
  Serious: Yes (Hospitalization, Other)
  Sender: FDA-Public Use
  Company Number: US-ELI_LILLY_AND_COMPANY-US200907000885

PATIENT
  Sex: Male

DRUGS (9)
  1. HUMALOG [Suspect]
     Indication: TYPE 1 DIABETES MELLITUS
     Dosage: 34 U, DAILY (1/D)
     Dates: start: 20070101
  2. HUMULIN N [Suspect]
     Dates: end: 20060101
  3. HUMULIN R [Suspect]
     Indication: TYPE 1 DIABETES MELLITUS
     Dates: end: 20060101
  4. HUMALOG [Suspect]
     Dosage: 34 U, DAILY (1/D)
     Dates: start: 20060101
  5. EXELON [Concomitant]
  6. ASPIRIN [Concomitant]
  7. MIDODRINE [Concomitant]
  8. NAMENDA [Concomitant]
  9. LANTUS [Concomitant]
     Dates: start: 20060101

REACTIONS (8)
  - AUTONOMIC NEUROPATHY [None]
  - BLOOD GLUCOSE DECREASED [None]
  - BLOOD GLUCOSE FLUCTUATION [None]
  - BLOOD PRESSURE ORTHOSTATIC DECREASED [None]
  - HYPOGLYCAEMIC SEIZURE [None]
  - HYPOGLYCAEMIC UNCONSCIOUSNESS [None]
  - MEMORY IMPAIRMENT [None]
  - PULSE PRESSURE DECREASED [None]
